FAERS Safety Report 8783110 (Version 1)
Quarter: 2012Q4

REPORT INFORMATION
  Report Type: 
  Country: JP (occurrence: JP)
  Receive Date: 20120913
  Receipt Date: 20120913
  Transmission Date: 20130627
  Serious: Yes (Hospitalization)
  Sender: FDA-Public Use
  Company Number: JP-ALLERGAN-1212656US

PATIENT
  Age: 88 Year
  Sex: Female

DRUGS (2)
  1. AIPHAGAN [Suspect]
     Indication: GLAUCOMA
     Dosage: 1 Gtt OU, bid
     Route: 047
     Dates: start: 201205
  2. COSOPT [Concomitant]
     Indication: DRUG USE FOR UNKNOWN INDICATION
     Dosage: UNK

REACTIONS (2)
  - Traumatic fracture [Not Recovered/Not Resolved]
  - Fall [Unknown]
